FAERS Safety Report 14246240 (Version 8)
Quarter: 2022Q4

REPORT INFORMATION
  Report Type: Report from Study
  Country: TW (occurrence: None)
  Receive Date: 20171204
  Receipt Date: 20221026
  Transmission Date: 20230113
  Serious: Yes (Hospitalization)
  Sender: FDA-Public Use
  Company Number: TW-ROCHE-2026355

PATIENT
  Age: 60 Year
  Sex: Female
  Weight: 42.6 kg

DRUGS (6)
  1. ATEZOLIZUMAB [Suspect]
     Active Substance: ATEZOLIZUMAB
     Indication: Renal cell carcinoma
     Dosage: DATE OF MOST RECENT DOSE OF ATEZOLIZUMAB PRIOR TO THE EVENT: 01/NOV/2017 (AT 15:14)?ARM A
     Route: 041
     Dates: start: 20171101
  2. ATENOLOL [Concomitant]
     Active Substance: ATENOLOL
     Indication: Arrhythmia
     Route: 048
     Dates: start: 20140520
  3. ROSUVASTATIN [Concomitant]
     Active Substance: ROSUVASTATIN
     Indication: Hypercholesterolaemia
     Route: 048
     Dates: start: 20140722
  4. DEXAMETHASONE [Concomitant]
     Active Substance: DEXAMETHASONE
  5. RANITIDINE [Concomitant]
     Active Substance: RANITIDINE
     Indication: Abdominal discomfort
     Route: 042
     Dates: start: 20171116, end: 20171120
  6. CONJUGATED ESTROGENS [Concomitant]
     Active Substance: ESTROGENS, CONJUGATED
     Indication: Menopause
     Route: 048
     Dates: start: 20080314

REACTIONS (3)
  - Leukopenia [Recovered/Resolved]
  - Aspartate aminotransferase increased [Recovered/Resolved]
  - Alanine aminotransferase increased [Recovered/Resolved]

NARRATIVE: CASE EVENT DATE: 20171115
